FAERS Safety Report 7788517-3 (Version None)
Quarter: 2011Q3

REPORT INFORMATION
  Report Type: 
  Country: None (occurrence: None)
  Receive Date: 20110930
  Receipt Date: 20110927
  Transmission Date: 20111222
  Serious: Yes (Disabling, Other)
  Sender: FDA-Public Use
  Company Number: PHHY2011US58183

PATIENT
  Sex: Female

DRUGS (9)
  1. MULTI-VITAMINS [Concomitant]
     Dosage: 1 DF, DAILY
     Route: 048
  2. CALCIUM CARBONATE [Concomitant]
     Dosage: 1 DF, DAILY
     Route: 048
  3. GILENYA [Suspect]
     Indication: MULTIPLE SCLEROSIS
     Dosage: 0.5 MG, QD
     Route: 048
     Dates: start: 20110518, end: 20110628
  4. VITAMIN D [Concomitant]
     Dosage: 1 DF, DAILY
     Route: 048
  5. DARVOCET-N 50 [Concomitant]
     Indication: PAIN
     Dosage: UNK
     Route: 048
  6. VITAMIN B-12 [Concomitant]
     Dosage: 1 DF, DAILY
     Route: 048
  7. SYNTHROID [Concomitant]
     Indication: HYPOTHYROIDISM
     Dosage: 1 DF, DAILY
     Route: 048
  8. PROZAC [Concomitant]
     Dosage: 20 UG, UNK
     Route: 048
     Dates: start: 20110307
  9. BACLOFEN [Concomitant]
     Indication: MUSCLE SPASTICITY
     Dosage: 5 MG, BID
     Dates: start: 20100701, end: 20110307

REACTIONS (7)
  - HEADACHE [None]
  - COUGH [None]
  - ABDOMINAL PAIN UPPER [None]
  - JOINT SWELLING [None]
  - OEDEMA PERIPHERAL [None]
  - DIZZINESS [None]
  - DYSPNOEA [None]
